FAERS Safety Report 4609373-8 (Version None)
Quarter: 2005Q2

REPORT INFORMATION
  Report Type: 
  Country: None (occurrence: None)
  Receive Date: 20050301
  Receipt Date: 20041105
  Transmission Date: 20051028
  Serious: Yes (Disabling)
  Sender: FDA-Public Use
  Company Number: WAES 0410USA00795

PATIENT
  Age: 65 Year
  Sex: Female
  Weight: 64.4108 kg

DRUGS (4)
  1. ZETIA [Suspect]
     Indication: BLOOD CHOLESTEROL INCREASED
     Dosage: 10 MG DAILY PO
     Route: 048
     Dates: start: 20040924, end: 20041004
  2. ZETIA [Suspect]
     Indication: HYPERLIPIDAEMIA
     Dosage: 10 MG DAILY PO
     Route: 048
     Dates: start: 20040924, end: 20041004
  3. PAXIL [Concomitant]
  4. PREMPRO [Concomitant]

REACTIONS (1)
  - ABDOMINAL PAIN [None]
